FAERS Safety Report 24010673 (Version 1)
Quarter: 2024Q2

REPORT INFORMATION
  Report Type: Spontaneous
  Country: US (occurrence: US)
  Receive Date: 20240625
  Receipt Date: 20240625
  Transmission Date: 20240715
  Serious: No
  Sender: FDA-Public Use
  Company Number: US-AMRYT PHARMACEUTICALS DAC-AEGR007189

PATIENT
  Sex: Female
  Weight: 49.492 kg

DRUGS (1)
  1. FILSUVEZ [Suspect]
     Active Substance: BIRCH TRITERPENES
     Indication: Epidermolysis bullosa
     Dosage: APPLY A 1 MM LAYER TO AFFECTED WOUND SURFACE(S) AT EACH DRESSING CHANGE UNTIL WOUND IS HEALED
     Route: 061
     Dates: start: 20240411

REACTIONS (2)
  - Blister [Unknown]
  - Hyperhidrosis [Unknown]
